FAERS Safety Report 4550007-9 (Version None)
Quarter: 2005Q1

REPORT INFORMATION
  Report Type: 
  Country: None (occurrence: None)
  Receive Date: 20050111
  Receipt Date: 20050111
  Transmission Date: 20050727
  Serious: No
  Sender: FDA-Public Use
  Company Number: None

PATIENT
  Age: 53 Year
  Sex: Male
  Weight: 60.5 kg

DRUGS (1)
  1. PROLASTIN [Suspect]
     Dosage: 120 MG/KG IV Q 2 WEEK
     Route: 042

REACTIONS (2)
  - FATIGUE [None]
  - INFUSION RELATED REACTION [None]
